FAERS Safety Report 5692891-1 (Version None)
Quarter: 2008Q2

REPORT INFORMATION
  Report Type: 
  Country: None (occurrence: None)
  Receive Date: 20080326
  Receipt Date: 20071030
  Transmission Date: 20081010
  Serious: No
  Sender: FDA-Public Use
  Company Number: US-CVT-070179

PATIENT
  Age: 82 Year
  Sex: Female

DRUGS (9)
  1. RANEXA [Suspect]
     Indication: ANGINA UNSTABLE
     Dosage: 500 MG, BID, ORAL
     Route: 048
     Dates: start: 20070913
  2. TARKA [Suspect]
  3. CARFATE (SUCRALFATE) [Concomitant]
  4. ATIVAN [Concomitant]
  5. COUMADIN [Concomitant]
  6. POTASSIUM CHLORIDE [Concomitant]
  7. LASIX [Concomitant]
  8. SINGULAIR/01362601 (MONTELUKAST) [Concomitant]
  9. SPIRIVA [Concomitant]

REACTIONS (2)
  - DRUG INTERACTION [None]
  - DYSARTHRIA [None]
